FAERS Safety Report 8322292-9 (Version None)
Quarter: 2012Q2

REPORT INFORMATION
  Report Type: 
  Country: None (occurrence: None)
  Receive Date: 20120430
  Receipt Date: 20120424
  Transmission Date: 20120825
  Serious: Yes (Hospitalization, Other)
  Sender: FDA-Public Use
  Company Number: PHHY2011US42725

PATIENT
  Sex: Female

DRUGS (3)
  1. YASMIN [Concomitant]
     Indication: CONTRACEPTION
     Dosage: 3002 MG, UNK
  2. VITAMIN B COMPLEX CAP [Concomitant]
     Indication: FATIGUE
     Dosage: UNK UKN, QD
  3. GILENYA [Suspect]
     Indication: MULTIPLE SCLEROSIS
     Dosage: 0.5 MG, DAILY
     Route: 048
     Dates: start: 20110428, end: 20110522

REACTIONS (14)
  - ASTHENIA [None]
  - FUNCTIONAL GASTROINTESTINAL DISORDER [None]
  - PARAESTHESIA [None]
  - CONSTIPATION [None]
  - THIRST [None]
  - CENTRAL NERVOUS SYSTEM LESION [None]
  - BLADDER DYSFUNCTION [None]
  - DEHYDRATION [None]
  - MULTIPLE SCLEROSIS RELAPSE [None]
  - URINARY TRACT INFECTION [None]
  - URINARY RETENTION [None]
  - NEUROMYELITIS OPTICA [None]
  - BOWEL MOVEMENT IRREGULARITY [None]
  - DRY MOUTH [None]
